FAERS Safety Report 8212499-3 (Version None)
Quarter: 2012Q1

REPORT INFORMATION
  Report Type: 
  Country: None (occurrence: None)
  Receive Date: 20120315
  Receipt Date: 20120308
  Transmission Date: 20120608
  Serious: Yes (Hospitalization, Other)
  Sender: FDA-Public Use
  Company Number: GB-GLAXOSMITHKLINE-B0700469A

PATIENT
  Age: 38 Year
  Sex: Male

DRUGS (2)
  1. SERTRALINE HYDROCHLORIDE [Suspect]
     Indication: PRODUCT USED FOR UNKNOWN INDICATION
     Route: 065
  2. SUMATRIPTAN SUCCINATE [Suspect]
     Indication: MIGRAINE
     Route: 048

REACTIONS (5)
  - DRUG INTERACTION [None]
  - ABDOMINAL PAIN [None]
  - DRUG PRESCRIBING ERROR [None]
  - OVERDOSE [None]
  - APPENDICITIS [None]
